FAERS Safety Report 8054914-4 (Version None)
Quarter: 2012Q1

REPORT INFORMATION
  Report Type: 
  Country: None (occurrence: None)
  Receive Date: 20120119
  Receipt Date: 20120109
  Transmission Date: 20120608
  Serious: Yes (Other)
  Sender: FDA-Public Use
  Company Number: US-BAYER-2011-053538

PATIENT
  Age: 19 Year
  Sex: Female
  Weight: 87 kg

DRUGS (9)
  1. DROSPIRENONE AND ETHINYL ESTRADIOL [Suspect]
     Indication: MENSTRUAL DISORDER
  2. DROSPIRENONE AND ETHINYL ESTRADIOL [Suspect]
     Indication: ORAL CONTRACEPTION
     Dosage: UNK
     Dates: start: 20090401, end: 20090927
  3. PHENTERMINE [Concomitant]
     Indication: WEIGHT DECREASED
     Dosage: 30 MG, QD
     Dates: start: 20090201, end: 20090401
  4. PHENTERMINE [Concomitant]
     Dosage: UNK
     Dates: start: 20090801, end: 20090901
  5. DROSPIRENONE AND ETHINYL ESTRADIOL [Suspect]
     Indication: PREMENSTRUAL SYNDROME
  6. YAZ [Suspect]
     Indication: ORAL CONTRACEPTION
     Dosage: UNK
     Dates: start: 20090301, end: 20090401
  7. YAZ [Suspect]
     Indication: PREMENSTRUAL SYNDROME
  8. YAZ [Suspect]
     Indication: MENSTRUAL DISORDER
  9. XANAX [Concomitant]
     Dosage: 0.25 MG, BID

REACTIONS (3)
  - GALLBLADDER DISORDER [None]
  - CHOLECYSTITIS CHRONIC [None]
  - INJURY [None]
